FAERS Safety Report 11241813 (Version 1)
Quarter: 2015Q3

REPORT INFORMATION
  Report Type: Spontaneous
  Country: PT (occurrence: PT)
  Receive Date: 20150706
  Receipt Date: 20150706
  Transmission Date: 20151125
  Serious: Yes (Life-Threatening)
  Sender: FDA-Public Use
  Company Number: PHHY2015PT080561

PATIENT
  Age: 37 Year
  Sex: Female

DRUGS (1)
  1. VOLTAREN [Suspect]
     Active Substance: DICLOFENAC SODIUM
     Indication: PRODUCT USED FOR UNKNOWN INDICATION
     Dosage: 2 DF, QD
     Route: 048
     Dates: start: 20140620

REACTIONS (10)
  - Dizziness [Recovered/Resolved]
  - Tongue oedema [Recovered/Resolved]
  - Laryngeal oedema [Recovered/Resolved]
  - Nausea [Recovered/Resolved]
  - Oropharyngeal discomfort [Recovered/Resolved]
  - Pruritus generalised [Recovered/Resolved]
  - Face oedema [Recovered/Resolved]
  - Generalised erythema [Recovered/Resolved]
  - Anaphylactic reaction [Recovered/Resolved]
  - Dyspnoea [Recovered/Resolved]

NARRATIVE: CASE EVENT DATE: 20140620
